FAERS Safety Report 9519537 (Version 1)
Quarter: 2013Q1

REPORT INFORMATION
  Report Type: Spontaneous
  Country: US (occurrence: None)
  Receive Date: 20130305
  Receipt Date: 20130305
  Transmission Date: 20140127
  Serious: Yes (Hospitalization)
  Sender: FDA-Public Use
  Company Number: 163-21880-12010720

PATIENT
  Age: 64 Year
  Sex: Female

DRUGS (5)
  1. REVLIMID (LENALIDOMIDE) (CAPSULES) [Suspect]
     Indication: PLASMA CELL MYELOMA
     Dosage: 25 MG, PO
     Route: 048
     Dates: start: 201109, end: 2011
  2. COUMADIN (WARFARIN SODIUM) (UNKNOWN) [Concomitant]
  3. OMEPRAZOLE (OMEPRAZOLE) (UNKNOWN) [Concomitant]
  4. WELLBUTRIN (BUPROPION HYDROCHLORIDE) (UNKNOWN) [Concomitant]
  5. NEURONTIN (GABAPENTIN) (UNKNOWN) [Concomitant]

REACTIONS (5)
  - Pneumonia [None]
  - Neuropathy peripheral [None]
  - Disease progression [None]
  - Blood immunoglobulin A increased [None]
  - Full blood count decreased [None]
